FAERS Safety Report 14781418 (Version 1)
Quarter: 2018Q2

REPORT INFORMATION
  Report Type: Spontaneous
  Country: US (occurrence: US)
  Receive Date: 20180419
  Receipt Date: 20180419
  Transmission Date: 20180711
  Serious: No
  Sender: FDA-Public Use
  Company Number: US-NEUROCRINE BIOSCIENCES INC.-2018NBI00560

PATIENT
  Sex: Male
  Weight: 79.45 kg

DRUGS (1)
  1. INGREZZA [Suspect]
     Active Substance: VALBENAZINE
     Indication: DYSTONIA

REACTIONS (3)
  - Balance disorder [Recovered/Resolved]
  - Off label use [Unknown]
  - Dysarthria [Recovered/Resolved]
